FAERS Safety Report 9514930 (Version 1)
Quarter: 2013Q1

REPORT INFORMATION
  Report Type: Spontaneous
  Country: US (occurrence: None)
  Receive Date: 20130305
  Receipt Date: 20130305
  Transmission Date: 20140127
  Serious: Yes (Other)
  Sender: FDA-Public Use
  Company Number: 163-21880-12113146

PATIENT
  Age: 50 Year
  Sex: Female
  Weight: 50.8 kg

DRUGS (13)
  1. REVLIMID (LENALIDOMIDE) (15 MILLIGRAM, CAPSULES) [Suspect]
     Indication: PLASMA CELL MYELOMA
     Route: 048
     Dates: start: 20120125
  2. DEXAMETHASONE (DEXAMETHASONE) (UNKNOWN) [Concomitant]
  3. ACYCLOVIR (ACICLOVIR) (UNKNOWN) [Concomitant]
  4. FOLIC ACID (FOLIC ACID) (UNKNOWN) [Concomitant]
  5. PRILOSEC (OMEPRAZOLE) (UNKNOWN) [Concomitant]
  6. VITAMIN D (ERGOCALCIFEROL) (UNKNOWN) [Concomitant]
  7. BACTRIM (BACTRIM) (UNKNOWN) [Concomitant]
  8. MULTIVITAMINS (MULTIVITAMINS) (UNKNOWN) [Concomitant]
  9. CALCIUM (CALCIUM) (UNKNOWN) [Concomitant]
  10. ASPIRIN (UNKNOWN) [Concomitant]
  11. VITAMIN B-100 COMPLEX (UNKNOWN) [Concomitant]
  12. VELCADE (UNKNOWN) [Concomitant]
  13. NEUPOGEN (FILGRASTIM) (UNKNOWN) [Concomitant]

REACTIONS (1)
  - Muscle spasms [None]
